FAERS Safety Report 6832660-X (Version None)
Quarter: 2010Q3

REPORT INFORMATION
  Report Type: 
  Country: None (occurrence: None)
  Receive Date: 20100712
  Receipt Date: 20070316
  Transmission Date: 20110219
  Serious: No
  Sender: FDA-Public Use
  Company Number: US-PFIZER INC-2007021128

PATIENT
  Sex: Female
  Weight: 54.9 kg

DRUGS (5)
  1. CHANTIX [Suspect]
     Indication: SMOKING CESSATION THERAPY
     Dates: start: 20070302, end: 20070315
  2. ZOFRAN [Concomitant]
  3. EMEND [Concomitant]
  4. DECADRON [Concomitant]
  5. ANTINEOPLASTIC AGENTS [Concomitant]

REACTIONS (2)
  - DECREASED APPETITE [None]
  - DYSGEUSIA [None]
